FAERS Safety Report 12287224 (Version 1)
Quarter: 2016Q2

REPORT INFORMATION
  Report Type: Spontaneous
  Country: US (occurrence: US)
  Receive Date: 20160420
  Receipt Date: 20160420
  Transmission Date: 20160815
  Serious: Yes (Hospitalization)
  Sender: FDA-Public Use
  Company Number: US-PFIZER INC-2016219695

PATIENT
  Age: 72 Year
  Sex: Male
  Weight: 87.7 kg

DRUGS (1)
  1. TIKOSYN [Suspect]
     Active Substance: DOFETILIDE
     Indication: VENTRICULAR TACHYCARDIA
     Dosage: 250 UG, 2X/DAY

REACTIONS (2)
  - Coronary artery disease [Not Recovered/Not Resolved]
  - Condition aggravated [Not Recovered/Not Resolved]
